FAERS Safety Report 24053190 (Version 1)
Quarter: 2024Q3

REPORT INFORMATION
  Report Type: Spontaneous
  Country: US (occurrence: US)
  Receive Date: 20240705
  Receipt Date: 20240705
  Transmission Date: 20241017
  Serious: No
  Sender: ABBVIE
  Company Number: US-ABBVIE-5822939

PATIENT
  Age: 39 Year
  Sex: Male
  Weight: 81.646 kg

DRUGS (1)
  1. MAVYRET [Suspect]
     Active Substance: GLECAPREVIR\PIBRENTASVIR
     Indication: Chronic hepatitis C
     Dosage: TIME INTERVAL: 0.33333333 DAYS
     Route: 048
     Dates: start: 202402, end: 20240401

REACTIONS (3)
  - Dizziness [Recovered/Resolved]
  - Feeling abnormal [Recovered/Resolved]
  - Fatigue [Recovered/Resolved]

NARRATIVE: CASE EVENT DATE: 20240201
